FAERS Safety Report 8922380 (Version 2)
Quarter: 2012Q4

REPORT INFORMATION
  Report Type: 
  Country: JP (occurrence: JP)
  Receive Date: 20121123
  Receipt Date: 20121203
  Transmission Date: 20130627
  Serious: Yes (Hospitalization, Other)
  Sender: FDA-Public Use
  Company Number: JP-009507513-1202USA01140

PATIENT
  Age: 63 Year
  Sex: Female
  Weight: 52 kg

DRUGS (7)
  1. FOSAMAC TABLETS 35MG [Suspect]
     Indication: OSTEOPOROSIS
     Dosage: 35 mg, qw
     Route: 048
     Dates: start: 20050708, end: 20100702
  2. PREDNISOLONE [Concomitant]
     Indication: RHEUMATOID ARTHRITIS
     Dosage: total daily dose 7.5mg
     Route: 048
     Dates: start: 20050708, end: 20121019
  3. LOXONIN [Concomitant]
     Indication: ARTHRALGIA
     Dosage: total daily dose 180mg
     Route: 048
     Dates: start: 20050708, end: 20121019
  4. GASTER [Concomitant]
     Indication: GASTRIC ULCER
     Dosage: total daily dose 40mg
     Route: 048
     Dates: start: 20050708, end: 20121019
  5. SALAZOPYRIN [Concomitant]
     Indication: RHEUMATOID ARTHRITIS
     Dosage: total daily dose 1g
     Route: 048
     Dates: start: 20050708, end: 20121019
  6. TAKEPRON [Concomitant]
     Indication: GASTRIC ULCER
     Dosage: total daily dose 15mg
     Dates: start: 20060725, end: 20121011
  7. LENDORMIN [Concomitant]
     Indication: INSOMNIA
     Dosage: total daily dose 0.25mg
     Route: 048
     Dates: start: 20060723, end: 20120329

REACTIONS (2)
  - Low turnover osteopathy [Not Recovered/Not Resolved]
  - Bone pain [Not Recovered/Not Resolved]
